FAERS Safety Report 11643259 (Version 1)
Quarter: 2015Q4

REPORT INFORMATION
  Report Type: Spontaneous
  Country: US (occurrence: US)
  Receive Date: 20151020
  Receipt Date: 20151020
  Transmission Date: 20160304
  Serious: No
  Sender: FDA-Public Use
  Company Number: US-WATSON-2015-15584

PATIENT
  Sex: Male

DRUGS (1)
  1. TROSPIUM (ACTAVIS LABORATORIES FL) [Suspect]
     Active Substance: TROSPIUM
     Indication: URINARY INCONTINENCE
     Dosage: 60 MG, DAILY
     Route: 048

REACTIONS (2)
  - Pollakiuria [None]
  - Drug ineffective [None]
